FAERS Safety Report 9689310 (Version 3)
Quarter: 2013Q4

REPORT INFORMATION
  Report Type: Spontaneous
  Country: US (occurrence: US)
  Receive Date: 20131114
  Receipt Date: 20131119
  Transmission Date: 20140711
  Serious: Yes (Hospitalization)
  Sender: FDA-Public Use
  Company Number: US-GILEAD-2013-0084175

PATIENT
  Age: 72 Year
  Sex: Female

DRUGS (4)
  1. LETAIRIS [Suspect]
     Indication: PULMONARY HYPERTENSION
     Dosage: 5 MG, QD
     Dates: start: 20130913
  2. LETAIRIS [Suspect]
     Dosage: 5 MG, UNK
     Dates: start: 20130912
  3. COUMADIN                           /00014802/ [Concomitant]
     Indication: PRODUCT USED FOR UNKNOWN INDICATION
  4. REVATIO [Concomitant]
     Indication: PRODUCT USED FOR UNKNOWN INDICATION

REACTIONS (6)
  - Fluid retention [Unknown]
  - Dyspnoea [Unknown]
  - Pleural effusion [Unknown]
  - Unevaluable event [Unknown]
  - Flushing [Unknown]
  - Rash [Unknown]
